FAERS Safety Report 10158678 (Version 2)
Quarter: 2014Q2

REPORT INFORMATION
  Report Type: Report from Study
  Country: US (occurrence: US)
  Receive Date: 20140508
  Receipt Date: 20140523
  Transmission Date: 20141212
  Serious: Yes (Other)
  Sender: FDA-Public Use
  Company Number: US-BIOGENIDEC-2014BI039266

PATIENT
  Age: 46 Year
  Sex: Female
  Weight: 85 kg

DRUGS (12)
  1. TYSABRI [Suspect]
     Indication: RELAPSING-REMITTING MULTIPLE SCLEROSIS
     Route: 042
     Dates: start: 20140206
  2. ACETAMINOPHEN [Concomitant]
     Indication: PAIN
     Route: 048
     Dates: start: 20131027
  3. BUTALBITAL, ACETAMINOPHEN AND CAFFEINE [Concomitant]
     Indication: HEADACHE
     Route: 048
     Dates: start: 20131106
  4. PRISTIQ ER [Concomitant]
     Indication: ANTIDEPRESSANT THERAPY
     Route: 048
     Dates: start: 20131103
  5. DIAZEPAM [Concomitant]
     Indication: INSOMNIA
     Route: 048
     Dates: start: 20131105
  6. GABAPENTIN [Concomitant]
     Indication: TRIGEMINAL NEURALGIA
     Route: 048
     Dates: start: 20130717
  7. PROVIGIL [Concomitant]
     Indication: FATIGUE
     Route: 048
     Dates: start: 20130716
  8. TOPAMAX [Concomitant]
     Indication: PAIN
     Route: 048
     Dates: start: 20131106
  9. COUMADIN [Concomitant]
     Indication: ANTICOAGULANT THERAPY
     Route: 048
     Dates: start: 20131027
  10. CEPHALEXIN [Concomitant]
     Indication: MASTITIS
     Route: 048
     Dates: start: 20140402
  11. IMITREX [Concomitant]
     Indication: MIGRAINE
     Route: 048
     Dates: start: 20140225
  12. OMEPRAZOLE [Concomitant]
     Indication: ABDOMINAL DISCOMFORT
     Route: 048

REACTIONS (1)
  - Loss of consciousness [Recovered/Resolved]
